FAERS Safety Report 21392602 (Version 2)
Quarter: 2023Q1

REPORT INFORMATION
  Report Type: Report from Study
  Country: US (occurrence: US)
  Receive Date: 20220929
  Receipt Date: 20230310
  Transmission Date: 20230418
  Serious: Yes (Other)
  Sender: FDA-Public Use
  Company Number: US-ABBVIE-4132466

PATIENT
  Sex: Male

DRUGS (3)
  1. HUMIRA [Suspect]
     Active Substance: ADALIMUMAB
     Indication: Rheumatoid arthritis
     Dosage: FORM STRENGTH: 40 MILLIGRAM?LAST ADMIN DATE: 2022
     Route: 058
     Dates: start: 20220418
  2. HUMIRA [Suspect]
     Active Substance: ADALIMUMAB
     Dosage: FORM STRENGTH: 40 MILLIGRAM?FIRST ADMIN DATE: 2022
     Route: 058
     Dates: end: 20221230
  3. PFIZER-BIONTECH COVID-19 VACCINE [Concomitant]
     Active Substance: TOZINAMERAN
     Indication: COVID-19 immunisation
     Route: 030

REACTIONS (8)
  - Gallbladder operation [Recovered/Resolved]
  - Arthralgia [Recovering/Resolving]
  - Neoplasm malignant [Not Recovered/Not Resolved]
  - Scar [Unknown]
  - Skin lesion [Not Recovered/Not Resolved]
  - Back pain [Unknown]
  - COVID-19 [Recovering/Resolving]
  - Arthralgia [Unknown]

NARRATIVE: CASE EVENT DATE: 20230101
